FAERS Safety Report 5795852-7 (Version None)
Quarter: 2008Q3

REPORT INFORMATION
  Report Type: 
  Country: None (occurrence: None)
  Receive Date: 20080701
  Receipt Date: 20080620
  Transmission Date: 20090109
  Serious: Yes (Hospitalization)
  Sender: FDA-Public Use
  Company Number: GB-RB-002041-08

PATIENT
  Age: 93 Year
  Sex: Female

DRUGS (2)
  1. BUPRENORPHINE HCL [Suspect]
     Indication: PAIN
     Route: 062
     Dates: end: 20080516
  2. ACETAMINOPHEN W/ CODEINE [Suspect]
     Indication: PAIN
     Route: 048
     Dates: end: 20080516

REACTIONS (2)
  - CONFUSIONAL STATE [None]
  - MOBILITY DECREASED [None]
